FAERS Safety Report 13034445 (Version 1)
Quarter: 2020Q3

REPORT INFORMATION
  Report Type: Spontaneous
  Country: GB (occurrence: GB)
  Receive Date: 20161216
  Receipt Date: 20161216
  Transmission Date: 20201104
  Serious: Yes (Other)
  Sender: FDA-Public Use
  Company Number: GB-AUROBINDO-AUR-APL-2016-15181

PATIENT
  Age: 48 Year
  Sex: Male
  Weight: 68.8 kg

DRUGS (32)
  1. PARACETAMOL [Suspect]
     Active Substance: ACETAMINOPHEN
     Indication: PRODUCT USED FOR UNKNOWN INDICATION
     Dosage: UNK
     Route: 065
     Dates: start: 20160702
  2. PARACETAMOL [Suspect]
     Active Substance: ACETAMINOPHEN
     Dosage: UNK
     Route: 065
     Dates: start: 20150528
  3. PROPOFOL. [Suspect]
     Active Substance: PROPOFOL
     Indication: ANAESTHESIA PROCEDURE
     Route: 065
     Dates: start: 20150528
  4. PROPOFOL. [Suspect]
     Active Substance: PROPOFOL
     Dosage: INDUCTION
     Route: 065
     Dates: start: 20160817, end: 20160817
  5. ONDANSETRON [Suspect]
     Active Substance: ONDANSETRON
     Dosage: 4 MG, AT 12:00 H
     Route: 065
     Dates: start: 20160817, end: 20160817
  6. DEXAMETHASONE. [Suspect]
     Active Substance: DEXAMETHASONE
     Dosage: UNK
     Route: 065
     Dates: start: 20160702
  7. EPHEDRINE. [Suspect]
     Active Substance: EPHEDRINE
     Indication: PRODUCT USED FOR UNKNOWN INDICATION
     Dosage: 6 MG, AT 12:00 H
     Route: 065
     Dates: start: 20160817, end: 20160817
  8. PROPOFOL. [Suspect]
     Active Substance: PROPOFOL
     Dosage: UNK
     Route: 065
     Dates: start: 20160702
  9. REMIFENTANIL [Suspect]
     Active Substance: REMIFENTANIL
     Indication: PRODUCT USED FOR UNKNOWN INDICATION
     Dosage: STRENGTH: 2MG/40ML, MULTIPLE DOSES THROUGHOUT SURGERY
     Route: 065
     Dates: start: 20160817, end: 20160817
  10. ATRACURIUM [Suspect]
     Active Substance: ATRACURIUM
     Indication: ANAESTHESIA PROCEDURE
     Route: 065
     Dates: start: 20150528
  11. SALBUTAMOL [Concomitant]
     Active Substance: ALBUTEROL
     Indication: PRODUCT USED FOR UNKNOWN INDICATION
     Route: 065
  12. SERETIDE [Concomitant]
     Active Substance: FLUTICASONE PROPIONATE\SALMETEROL XINAFOATE
     Indication: PRODUCT USED FOR UNKNOWN INDICATION
     Route: 065
  13. DESFLURANE. [Suspect]
     Active Substance: DESFLURANE
     Indication: ANAESTHESIA PROCEDURE
     Dosage: MAINTENANCE
     Route: 055
     Dates: start: 20160817, end: 20160817
  14. MIDAZOLAM HYDROCHLORIDE. [Suspect]
     Active Substance: MIDAZOLAM HYDROCHLORIDE
     Dosage: UNK
     Route: 065
     Dates: start: 20150528
  15. PROPOFOL. [Suspect]
     Active Substance: PROPOFOL
     Dosage: PRE?INDUCTION
     Route: 065
     Dates: start: 20160817, end: 20160817
  16. TIOTROPIUM [Concomitant]
     Active Substance: TIOTROPIUM
     Indication: PRODUCT USED FOR UNKNOWN INDICATION
     Route: 065
  17. PARACETAMOL [Suspect]
     Active Substance: ACETAMINOPHEN
     Dosage: 1 G, AT 09:45 H
     Route: 065
     Dates: start: 20160817, end: 20160817
  18. SEVOFLURANE. [Suspect]
     Active Substance: SEVOFLURANE
     Dosage: UNK
     Route: 065
     Dates: start: 20150528
  19. DEXAMETHASONE. [Suspect]
     Active Substance: DEXAMETHASONE
     Dosage: UNK
     Route: 065
     Dates: start: 20150528
  20. FENTANYL. [Suspect]
     Active Substance: FENTANYL
     Dosage: UNK
     Route: 065
     Dates: start: 20160702
  21. FENTANYL. [Suspect]
     Active Substance: FENTANYL
     Dosage: PRE?INDUCTION
     Route: 065
     Dates: start: 20160817, end: 20160817
  22. SEVOFLURANE. [Suspect]
     Active Substance: SEVOFLURANE
     Indication: ANAESTHESIA PROCEDURE
     Dosage: MAINTENANCE
     Route: 065
     Dates: start: 20160817, end: 20160817
  23. FENTANYL. [Suspect]
     Active Substance: FENTANYL
     Indication: ANAESTHESIA PROCEDURE
     Route: 065
     Dates: start: 20150528
  24. MORPHINE [Suspect]
     Active Substance: MORPHINE
     Route: 065
     Dates: start: 20150528
  25. ONDANSETRON [Suspect]
     Active Substance: ONDANSETRON
     Dosage: UNK
     Route: 065
     Dates: start: 20150528
  26. MORPHINE [Suspect]
     Active Substance: MORPHINE
     Indication: PRODUCT USED FOR UNKNOWN INDICATION
     Dosage: AT 12:00 H
     Route: 065
     Dates: start: 20160817, end: 20160817
  27. ONDANSETRON [Suspect]
     Active Substance: ONDANSETRON
     Indication: PRODUCT USED FOR UNKNOWN INDICATION
     Dosage: UNK
     Route: 065
     Dates: start: 20160702
  28. ROCURONIUM [Suspect]
     Active Substance: ROCURONIUM BROMIDE
     Indication: ANAESTHESIA PROCEDURE
     Dosage: INDUCTION
     Route: 065
     Dates: start: 20160817, end: 20160817
  29. SEVOFLURANE. [Suspect]
     Active Substance: SEVOFLURANE
     Dosage: UNK
     Route: 065
     Dates: start: 20160702
  30. DEXAMETHASONE. [Suspect]
     Active Substance: DEXAMETHASONE
     Indication: PRODUCT USED FOR UNKNOWN INDICATION
     Dosage: AT 09:15 H
     Route: 065
     Dates: start: 20160817, end: 20160817
  31. DICLOFENAC [Suspect]
     Active Substance: DICLOFENAC
     Indication: PRODUCT USED FOR UNKNOWN INDICATION
     Dosage: 25 MG, AT 10:00 H
     Route: 065
     Dates: start: 20160817, end: 20160817
  32. MIDAZOLAM HYDROCHLORIDE. [Suspect]
     Active Substance: MIDAZOLAM HYDROCHLORIDE
     Indication: ANAESTHESIA PROCEDURE
     Route: 065
     Dates: start: 20160702

REACTIONS (1)
  - Hyperkalaemia [Recovered/Resolved]

NARRATIVE: CASE EVENT DATE: 20160817
